FAERS Safety Report 10380394 (Version 1)
Quarter: 2014Q3

REPORT INFORMATION
  Report Type: Spontaneous
  Country: US (occurrence: None)
  Receive Date: 20140812
  Receipt Date: 20140812
  Transmission Date: 20150326
  Serious: Yes (Hospitalization, Disabling)
  Sender: FDA-Public Use
  Company Number: None

PATIENT
  Age: 37 Year
  Sex: Female
  Weight: 69.85 kg

DRUGS (1)
  1. INVEGA [Suspect]
     Active Substance: PALIPERIDONE
     Indication: SCHIZOPHRENIA
     Dosage: 1 PILL (3 MG) ONCE DAILY TAKEN BY MOUTH
     Route: 048
     Dates: start: 20140226, end: 20140811

REACTIONS (24)
  - Oropharyngeal pain [None]
  - Restlessness [None]
  - Metabolic syndrome [None]
  - Irritability [None]
  - Pain [None]
  - Abdominal pain upper [None]
  - Pyrexia [None]
  - Gait disturbance [None]
  - Anxiety [None]
  - Vision blurred [None]
  - Asthenia [None]
  - Dizziness [None]
  - Dyspnoea [None]
  - Syncope [None]
  - Chills [None]
  - Headache [None]
  - Weight increased [None]
  - Dysarthria [None]
  - Eye movement disorder [None]
  - Suicidal ideation [None]
  - Dysstasia [None]
  - Dyskinesia [None]
  - Pollakiuria [None]
  - Malaise [None]

NARRATIVE: CASE EVENT DATE: 20140420
